FAERS Safety Report 8139981-1 (Version None)
Quarter: 2012Q1

REPORT INFORMATION
  Report Type: 
  Country: None (occurrence: None)
  Receive Date: 20120215
  Receipt Date: 20120207
  Transmission Date: 20120608
  Serious: Yes (Death, Hospitalization, Disabling)
  Sender: FDA-Public Use
  Company Number: US-MERCK-1110USA00594

PATIENT
  Age: 80 Year
  Sex: Male

DRUGS (1)
  1. FOSAMAX [Suspect]
     Indication: BONE DENSITY DECREASED
     Route: 048
     Dates: start: 20050124, end: 20100101

REACTIONS (19)
  - FATIGUE [None]
  - CONSTIPATION [None]
  - DEHYDRATION [None]
  - FEMUR FRACTURE [None]
  - RESPIRATORY FAILURE [None]
  - PNEUMONIA ASPIRATION [None]
  - OEDEMA PERIPHERAL [None]
  - HAEMORRHAGIC ANAEMIA [None]
  - HYPERNATRAEMIA [None]
  - HYPERGLYCAEMIA [None]
  - ASTHENIA [None]
  - BLOOD PRESSURE INCREASED [None]
  - ATRIAL TACHYCARDIA [None]
  - OSTEOPOROSIS [None]
  - BLOOD BLISTER [None]
  - SKIN LESION [None]
  - RIB FRACTURE [None]
  - ACUTE RESPIRATORY FAILURE [None]
  - DEMENTIA ALZHEIMER'S TYPE [None]
